FAERS Safety Report 6579368-6 (Version None)
Quarter: 2010Q1

REPORT INFORMATION
  Report Type: 
  Country: None (occurrence: None)
  Receive Date: 20100212
  Receipt Date: 20100202
  Transmission Date: 20100710
  Serious: No
  Sender: FDA-Public Use
  Company Number: CR-ELI_LILLY_AND_COMPANY-CR201002002041

PATIENT
  Age: 70 Year
  Sex: Female

DRUGS (2)
  1. OLANZAPINE [Suspect]
     Indication: SCHIZOPHRENIA
     Dosage: 10 MG, DAILY (1/D)
     Route: 048
     Dates: start: 20020101, end: 20091201
  2. RISPERDAL [Concomitant]
     Dosage: UNK, UNKNOWN
     Route: 065
     Dates: start: 20091201

REACTIONS (1)
  - LEUKOPENIA [None]
